FAERS Safety Report 8517215-3 (Version None)
Quarter: 2012Q3

REPORT INFORMATION
  Report Type: 
  Country: None (occurrence: None)
  Receive Date: 20120718
  Receipt Date: 20120703
  Transmission Date: 20120928
  Serious: Yes (Life-Threatening)
  Sender: FDA-Public Use
  Company Number: CA-FRI-1000037054

PATIENT
  Sex: Male
  Weight: 3 kg

DRUGS (1)
  1. CELEXA [Suspect]
     Dosage: 20 MG
     Route: 064

REACTIONS (5)
  - WITHDRAWAL SYNDROME [None]
  - HYPERTONIA [None]
  - INFANTILE APNOEIC ATTACK [None]
  - FOETAL EXPOSURE DURING PREGNANCY [None]
  - DYSPNOEA [None]
